FAERS Safety Report 20564967 (Version 15)
Quarter: 2022Q3

REPORT INFORMATION
  Report Type: Report from Study
  Country: BR (occurrence: BR)
  Receive Date: 20220308
  Receipt Date: 20220915
  Transmission Date: 20221026
  Serious: Yes (Other)
  Sender: FDA-Public Use
  Company Number: BR-NOVARTISPH-NVSC2021BR302501

PATIENT
  Age: 62 Year
  Sex: Female
  Weight: 92 kg

DRUGS (22)
  1. KISQALI [Suspect]
     Active Substance: RIBOCICLIB
     Indication: Metastases to breast
     Dosage: 200 MG
     Route: 065
     Dates: start: 202007
  2. KISQALI [Suspect]
     Active Substance: RIBOCICLIB
     Indication: Neoplasm malignant
     Dosage: 3 DF, QD
     Route: 048
     Dates: start: 20210326
  3. KISQALI [Suspect]
     Active Substance: RIBOCICLIB
     Dosage: 3 DF, QD
     Route: 048
     Dates: start: 20210326
  4. KISQALI [Suspect]
     Active Substance: RIBOCICLIB
     Dosage: UNK (3X A DAY, 7 PAUSE DAYS)
     Route: 065
     Dates: start: 20210327
  5. KISQALI [Suspect]
     Active Substance: RIBOCICLIB
     Dosage: 600 MG, QD
     Route: 065
  6. KISQALI [Suspect]
     Active Substance: RIBOCICLIB
     Dosage: 3 DF QD (TABLETS FOR 21 DAYS)
     Route: 065
     Dates: start: 20210327
  7. KISQALI [Suspect]
     Active Substance: RIBOCICLIB
     Dosage: UNK
     Route: 065
     Dates: start: 20210327
  8. KISQALI [Suspect]
     Active Substance: RIBOCICLIB
     Dosage: 3 DOSAGE FORM
     Route: 065
     Dates: start: 20210327
  9. KISQALI [Suspect]
     Active Substance: RIBOCICLIB
     Dosage: 3 DOSAGE FORM
     Route: 065
     Dates: start: 20210327
  10. KISQALI [Suspect]
     Active Substance: RIBOCICLIB
     Dosage: 3 DOSAGE FORM
     Route: 065
     Dates: start: 20210327
  11. KISQALI [Suspect]
     Active Substance: RIBOCICLIB
     Dosage: 3 DOSAGE FORM
     Route: 048
     Dates: start: 20210327
  12. KISQALI [Suspect]
     Active Substance: RIBOCICLIB
     Dosage: UNK
     Route: 065
     Dates: start: 202103
  13. KISQALI [Suspect]
     Active Substance: RIBOCICLIB
     Dosage: UNK
     Route: 065
     Dates: start: 20210327
  14. KISQALI [Suspect]
     Active Substance: RIBOCICLIB
     Dosage: UNK (3)
     Route: 065
  15. KISQALI [Suspect]
     Active Substance: RIBOCICLIB
     Dosage: UNK
     Route: 065
     Dates: start: 20210327
  16. KISQALI [Suspect]
     Active Substance: RIBOCICLIB
     Dosage: UNK (1 YEAR AGO)
     Route: 065
  17. KISQALI [Suspect]
     Active Substance: RIBOCICLIB
     Dosage: 3 DOSAGE FORM, QD (DURING 21 DAYS)
     Route: 048
     Dates: start: 20210327
  18. KISQALI [Suspect]
     Active Substance: RIBOCICLIB
     Dosage: UNK (DOSE 3)
     Route: 065
     Dates: start: 20210327
  19. KISQALI [Suspect]
     Active Substance: RIBOCICLIB
     Dosage: DOSE 3
     Route: 065
  20. LETROZOLE [Suspect]
     Active Substance: LETROZOLE
     Indication: Breast cancer metastatic
     Dosage: 1 DOSAGE FORM, QD
     Route: 048
     Dates: start: 20210326
  21. LETROZOLE [Suspect]
     Active Substance: LETROZOLE
     Indication: Neoplasm malignant
     Dosage: UNK (CONTINUOUS FOR 28 DAYS)
     Route: 065
  22. LETROZOLE [Suspect]
     Active Substance: LETROZOLE
     Dosage: 2.5 MG, QD (1 TABLET)
     Route: 065
     Dates: start: 20210327

REACTIONS (78)
  - Immunodeficiency [Unknown]
  - Aspartate aminotransferase increased [Unknown]
  - Metastases to lung [Recovered/Resolved]
  - Plantar fasciitis [Not Recovered/Not Resolved]
  - Pain in extremity [Unknown]
  - Blood disorder [Unknown]
  - Insomnia [Recovered/Resolved]
  - Injury [Unknown]
  - Burn oesophageal [Unknown]
  - Wound [Recovered/Resolved]
  - Skin atrophy [Unknown]
  - Fingerprint loss [Not Recovered/Not Resolved]
  - Sensitive skin [Unknown]
  - Blister [Unknown]
  - Lumbar spinal stenosis [Unknown]
  - Feeling abnormal [Unknown]
  - Spinal pain [Recovering/Resolving]
  - Pain in extremity [Recovered/Resolved]
  - Mean cell volume increased [Unknown]
  - Mean cell haemoglobin increased [Unknown]
  - Polychromasia [Unknown]
  - Macrocytosis [Unknown]
  - Carbohydrate antigen 15-3 increased [Unknown]
  - Pruritus [Recovered/Resolved]
  - Arthropathy [Unknown]
  - Asthenia [Recovered/Resolved]
  - Gait inability [Recovered/Resolved]
  - Abdominal discomfort [Recovered/Resolved]
  - Hypersensitivity [Recovered/Resolved]
  - Nausea [Recovered/Resolved]
  - Cough [Recovered/Resolved]
  - Decreased appetite [Recovered/Resolved]
  - Nausea [Recovered/Resolved]
  - Diarrhoea [Recovered/Resolved]
  - Red blood cell count decreased [Unknown]
  - Alopecia [Not Recovered/Not Resolved]
  - Ageusia [Unknown]
  - Eating disorder [Unknown]
  - Taste disorder [Recovered/Resolved]
  - Breast mass [Unknown]
  - Malaise [Recovered/Resolved]
  - Neuralgia [Recovering/Resolving]
  - Haemorrhoidal haemorrhage [Recovered/Resolved]
  - Haemorrhoids [Recovered/Resolved]
  - Arthralgia [Unknown]
  - Musculoskeletal stiffness [Not Recovered/Not Resolved]
  - Muscle spasms [Recovered/Resolved]
  - Malaise [Recovered/Resolved]
  - Burning sensation [Unknown]
  - Pain [Recovering/Resolving]
  - Anxiety [Unknown]
  - Limb discomfort [Unknown]
  - Musculoskeletal discomfort [Unknown]
  - Muscle disorder [Unknown]
  - Back pain [Recovered/Resolved]
  - Nausea [Recovered/Resolved]
  - Abdominal pain upper [Recovered/Resolved]
  - Gingival bleeding [Recovered/Resolved]
  - Nasal congestion [Recovered/Resolved]
  - Rhinorrhoea [Recovering/Resolving]
  - Epistaxis [Recovering/Resolving]
  - COVID-19 [Recovered/Resolved]
  - Sneezing [Recovered/Resolved]
  - Headache [Recovered/Resolved]
  - Nasopharyngitis [Recovering/Resolving]
  - Oropharyngeal pain [Recovering/Resolving]
  - Back pain [Not Recovered/Not Resolved]
  - Muscle spasms [Recovering/Resolving]
  - Gait disturbance [Unknown]
  - Hair disorder [Not Recovered/Not Resolved]
  - Nail disorder [Unknown]
  - Asthenia [Recovering/Resolving]
  - Onychoclasis [Unknown]
  - Pulmonary pain [Recovered/Resolved]
  - Scar [Unknown]
  - Nodule [Unknown]
  - Neoplasm [Unknown]
  - Influenza [Recovering/Resolving]

NARRATIVE: CASE EVENT DATE: 20210201
